FAERS Safety Report 5824091-6 (Version None)
Quarter: 2008Q3

REPORT INFORMATION
  Report Type: 
  Country: None (occurrence: None)
  Receive Date: 20080728
  Receipt Date: 20080718
  Transmission Date: 20090109
  Serious: Yes (Death, Hospitalization)
  Sender: FDA-Public Use
  Company Number: US-SANOFI-SYNTHELABO-F03200800084

PATIENT
  Sex: Male
  Weight: 139.3 kg

DRUGS (12)
  1. ARIXTRA [Concomitant]
     Indication: PULMONARY EMBOLISM
     Route: 058
     Dates: start: 20080409, end: 20080427
  2. JANUVIA [Concomitant]
     Indication: DIABETES MELLITUS
     Route: 048
     Dates: start: 20071201
  3. ASPIRIN [Concomitant]
     Indication: PLATELET AGGREGATION INHIBITION
     Route: 048
     Dates: start: 20080401
  4. LOTENSIN HCT [Concomitant]
     Indication: HYPERTENSION
     Dosage: 20/25 MG
     Route: 048
     Dates: start: 20070801
  5. AMARYL [Concomitant]
     Indication: DIABETES MELLITUS
     Route: 048
     Dates: start: 20040101
  6. CAPECITABINE [Suspect]
     Indication: OESOPHAGEAL ADENOCARCINOMA
     Dosage: 1000 MG/M2 BID DAYS 1-7, 15-21 AND 29-35
     Route: 048
     Dates: start: 20080330, end: 20080330
  7. CADUET [Concomitant]
     Indication: HYPERTENSION
     Route: 048
     Dates: start: 20040101
  8. CADUET [Concomitant]
     Indication: DYSLIPIDAEMIA
     Route: 048
     Dates: start: 20040101
  9. DOCETAXEL [Suspect]
     Indication: OESOPHAGEAL ADENOCARCINOMA
     Dosage: 20 MG/M2 ON DAY 1, 8, 15, 22, AND 29
     Route: 042
     Dates: start: 20080324, end: 20080324
  10. ZETIA [Concomitant]
     Indication: DYSLIPIDAEMIA
     Route: 048
     Dates: start: 20070801
  11. TRICOR [Concomitant]
     Indication: DYSLIPIDAEMIA
     Route: 048
     Dates: start: 20040101
  12. OXALIPLATIN [Suspect]
     Indication: OESOPHAGEAL ADENOCARCINOMA
     Dosage: 40 MG/M2 ON DAYS 1, 8, 15, 22 AND 29
     Route: 042
     Dates: start: 20080324, end: 20080324

REACTIONS (4)
  - GASTROINTESTINAL ANASTOMOTIC LEAK [None]
  - MEDIASTINITIS [None]
  - TRACHEAL DISORDER [None]
  - TRACHEAL FISTULA [None]
